FAERS Safety Report 9755987 (Version 1)
Quarter: 2013Q4

REPORT INFORMATION
  Report Type: Spontaneous
  Country: US (occurrence: US)
  Receive Date: 20131213
  Receipt Date: 20131213
  Transmission Date: 20140711
  Serious: Yes (Death)
  Sender: FDA-Public Use
  Company Number: US-GLAXOSMITHKLINE-A1052846A

PATIENT
  Age: 70 Year
  Sex: Male

DRUGS (4)
  1. VENTOLIN [Suspect]
     Indication: EX-TOBACCO USER
     Route: 055
     Dates: end: 20131207
  2. NEBULIZER [Concomitant]
  3. CARDIAC MEDICATION [Concomitant]
  4. ANTACID [Concomitant]

REACTIONS (2)
  - Death [Fatal]
  - Adverse event [Fatal]
